FAERS Safety Report 12137458 (Version 1)
Quarter: 2016Q1

REPORT INFORMATION
  Report Type: Spontaneous
  Country: US (occurrence: None)
  Receive Date: 20160301
  Receipt Date: 20160301
  Transmission Date: 20160526
  Serious: Yes (Other)
  Sender: FDA-Public Use
  Company Number: None

PATIENT
  Age: 54 Year
  Sex: Female
  Weight: 86.18 kg

DRUGS (11)
  1. CARVELIDOL [Concomitant]
  2. FUROSEMIDE. [Concomitant]
     Active Substance: FUROSEMIDE
  3. SINGULAIR [Concomitant]
     Active Substance: MONTELUKAST SODIUM
  4. MODAFINIL. [Concomitant]
     Active Substance: MODAFINIL
  5. PERINDROPIL [Concomitant]
  6. LEVOTHYROXINE. [Concomitant]
     Active Substance: LEVOTHYROXINE
  7. ALDACTONE [Concomitant]
     Active Substance: SPIRONOLACTONE
  8. SORTEO [Concomitant]
  9. MEDIRLO [Concomitant]
  10. LUNESTA [Concomitant]
     Active Substance: ESZOPICLONE
  11. RANEXA [Suspect]
     Active Substance: RANOLAZINE
     Indication: CARDIAC DISORDER
     Route: 048
     Dates: start: 20160226, end: 20160229

REACTIONS (1)
  - Rash [None]

NARRATIVE: CASE EVENT DATE: 20160229
